FAERS Safety Report 16504828 (Version 3)
Quarter: 2022Q2

REPORT INFORMATION
  Report Type: Spontaneous
  Country: US (occurrence: US)
  Receive Date: 20190701
  Receipt Date: 20220614
  Transmission Date: 20220721
  Serious: No
  Sender: FDA-Public Use
  Company Number: US-PFM-2019-00162

PATIENT

DRUGS (4)
  1. HEMANGEOL [Suspect]
     Active Substance: PROPRANOLOL HYDROCHLORIDE
     Indication: Haemangioma
     Dosage: 4.8 ML, BID (2/DAY)
     Route: 048
     Dates: start: 201504
  2. HEMANGEOL [Suspect]
     Active Substance: PROPRANOLOL HYDROCHLORIDE
     Dosage: 5 ML, BID (2/DAY)
     Route: 048
  3. HEMANGEOL [Suspect]
     Active Substance: PROPRANOLOL HYDROCHLORIDE
     Dosage: 4.8 ML, BID (2/DAY)
     Route: 065
  4. HEMANGEOL [Suspect]
     Active Substance: PROPRANOLOL HYDROCHLORIDE
     Dosage: UNK

REACTIONS (4)
  - Sinus disorder [Unknown]
  - Irritability [Unknown]
  - Off label use [Unknown]
  - Product use issue [Unknown]
